FAERS Safety Report 25982521 (Version 1)
Quarter: 2025Q4

REPORT INFORMATION
  Report Type: Report from Study
  Country: EU (occurrence: EU)
  Receive Date: 20251031
  Receipt Date: 20251031
  Transmission Date: 20260117
  Serious: Yes (Other)
  Sender: JOHNSON AND JOHNSON
  Company Number: EU-JNJFOC-20250811677

PATIENT

DRUGS (1)
  1. STELARA [Suspect]
     Active Substance: USTEKINUMAB
     Indication: Psoriasis
     Route: 058

REACTIONS (34)
  - Pneumonia [Unknown]
  - Nephrolithiasis [Unknown]
  - Psoriatic arthropathy [Unknown]
  - Mitral valve incompetence [Unknown]
  - Urinary retention [Unknown]
  - Atrial fibrillation [Unknown]
  - Angioedema [Unknown]
  - Infection [Unknown]
  - Nasopharyngitis [Unknown]
  - Urinary tract infection [Unknown]
  - Influenza [Unknown]
  - Tonsillitis [Unknown]
  - Rhinitis [Unknown]
  - Conjunctivitis [Unknown]
  - Otitis externa [Unknown]
  - Respiratory tract infection viral [Unknown]
  - Hypertriglyceridaemia [Unknown]
  - Obesity [Unknown]
  - Haematuria [Unknown]
  - Ketonuria [Unknown]
  - Erythropenia [Unknown]
  - Acne [Unknown]
  - Arthralgia [Unknown]
  - Foot fracture [Unknown]
  - Prostatitis [Unknown]
  - Left atrial enlargement [Unknown]
  - Pruritus [Unknown]
  - Rash maculo-papular [Unknown]
  - Thrombocytosis [Unknown]
  - Headache [Unknown]
  - Oral herpes [Unknown]
  - Oral candidiasis [Unknown]
  - Hypersensitivity [Unknown]
  - Rhinorrhoea [Unknown]
